FAERS Safety Report 18257531 (Version 1)
Quarter: 2020Q3

REPORT INFORMATION
  Report Type: Spontaneous
  Country: BE (occurrence: BE)
  Receive Date: 20200911
  Receipt Date: 20200911
  Transmission Date: 20201103
  Serious: Yes (Death, Hospitalization)
  Sender: FDA-Public Use
  Company Number: BE-PFIZER INC-2020348311

PATIENT
  Age: 63 Year
  Sex: Female

DRUGS (4)
  1. CARMUSTINE. [Suspect]
     Active Substance: CARMUSTINE
     Indication: CENTRAL NERVOUS SYSTEM LYMPHOMA
     Dosage: UNK, CYCLIC (POLYCHEMOTHERAPY)
  2. CYTARABINE. [Suspect]
     Active Substance: CYTARABINE
     Indication: CENTRAL NERVOUS SYSTEM LYMPHOMA
     Dosage: UNK, CYCLIC (POLYCHEMOTHERAPY )
  3. VINCRISTINE [Suspect]
     Active Substance: VINCRISTINE
     Indication: CENTRAL NERVOUS SYSTEM LYMPHOMA
     Dosage: UNK, CYCLIC (POLYCHEMOTHERAPY)
  4. METHOTREXATE SODIUM. [Suspect]
     Active Substance: METHOTREXATE SODIUM
     Indication: CENTRAL NERVOUS SYSTEM LYMPHOMA
     Dosage: UNK, CYCLIC (POLYCHEMOTHERAPY)

REACTIONS (6)
  - Septic shock [Unknown]
  - Tumour invasion [Fatal]
  - Cardiac dysfunction [Unknown]
  - Cardiac failure [Unknown]
  - Acute pulmonary oedema [Unknown]
  - Viral myocarditis [Unknown]
